FAERS Safety Report 8224344-0 (Version None)
Quarter: 2012Q1

REPORT INFORMATION
  Report Type: 
  Country: None (occurrence: None)
  Receive Date: 20120321
  Receipt Date: 20120312
  Transmission Date: 20120608
  Serious: Yes (Hospitalization)
  Sender: FDA-Public Use
  Company Number: JP-SANOFI-AVENTIS-2012SA014198

PATIENT
  Age: 68 Year
  Sex: Female

DRUGS (7)
  1. CARVEDILOL [Suspect]
     Indication: SUICIDE ATTEMPT
     Dosage: DOSE- OVERDOSE: 22 DAYS' WORTH TAKEN AT ONCE
     Route: 065
     Dates: start: 20120229, end: 20120229
  2. DIOVAN [Suspect]
     Indication: SUICIDE ATTEMPT
     Dosage: DOSE- OVERDOSE: 22 DAYS' WORTH TAKEN AT ONCE
     Route: 065
     Dates: start: 20120229, end: 20120229
  3. AMLODIPINE/VALSARTAN [Suspect]
     Indication: SUICIDE ATTEMPT
     Dosage: DOSE- OVERDOSE: 22 DAYS' WORTH TAKEN AT ONCE
     Route: 065
     Dates: start: 20120229, end: 20120229
  4. OMEPRAZOLE [Suspect]
     Indication: SUICIDE ATTEMPT
     Dosage: STRENGTH: 10MGDOSE- OVERDOSE: 22 DAYS' WORTH TAKEN AT ONCE
     Route: 065
     Dates: start: 20120229, end: 20120229
  5. AMARYL [Suspect]
     Indication: SUICIDE ATTEMPT
     Dosage: 22 DAYS PORTION OF AMARYL 1.5MG
     Route: 048
     Dates: start: 20120229, end: 20120229
  6. ATORVASTATIN CALCIUM [Suspect]
     Indication: SUICIDE ATTEMPT
     Dosage: DOSE- OVERDOSE: 22 DAYS' WORTH TAKEN AT ONCE
     Route: 065
     Dates: start: 20120229, end: 20120229
  7. LASIX [Suspect]
     Indication: SUICIDE ATTEMPT
     Dosage: DOSE- OVERDOSE: 22 DAYS' WORTH TAKEN AT ONCE
     Route: 065
     Dates: start: 20120229, end: 20120229

REACTIONS (2)
  - OVERDOSE [None]
  - HYPOTENSION [None]
